FAERS Safety Report 7294685 (Version 4)
Quarter: 2013Q1

REPORT INFORMATION
  Report Type: Spontaneous
  Country: GB (occurrence: GB)
  Receive Date: 20100225
  Receipt Date: 20130115
  Transmission Date: 20140127
  Serious: Yes (Death, Hospitalization)
  Sender: FDA-Public Use
  Company Number: PHHY2009GB52336

PATIENT
  Sex: Male

DRUGS (5)
  1. CLOZARIL [Suspect]
     Indication: PSYCHOTIC DISORDER
     Dosage: 12.5 MG, QHS
     Dates: start: 20090930
  2. CLOZARIL [Suspect]
     Indication: PARKINSON^S DISEASE
  3. CLOZARIL [Suspect]
     Indication: CONFUSIONAL STATE
  4. CLOZARIL [Suspect]
     Indication: AGITATION
  5. CLOZARIL [Suspect]
     Indication: DEMENTIA

REACTIONS (5)
  - Pneumonia [Fatal]
  - Parkinson^s disease [Not Recovered/Not Resolved]
  - General physical health deterioration [Unknown]
  - Asthenia [Unknown]
  - Haemoglobin decreased [Unknown]
